FAERS Safety Report 14861555 (Version 1)
Quarter: 2018Q2

REPORT INFORMATION
  Report Type: Spontaneous
  Country: FR (occurrence: FR)
  Receive Date: 20180508
  Receipt Date: 20180508
  Transmission Date: 20180711
  Serious: Yes (Other)
  Sender: FDA-Public Use
  Company Number: FR-TEVA-2018-FR-890935

PATIENT
  Age: 62 Year
  Sex: Female
  Weight: 103 kg

DRUGS (1)
  1. IRBESARTAN AND HYDROCHLOROTHIAZIDE [Suspect]
     Active Substance: HYDROCHLOROTHIAZIDE\IRBESARTAN
     Indication: HYPERTENSION
     Dosage: 1 DOSAGE FORMS DAILY;
     Route: 048

REACTIONS (10)
  - Urticaria [Recovering/Resolving]
  - Myalgia [Recovering/Resolving]
  - Fatigue [Recovering/Resolving]
  - Muscular weakness [Recovering/Resolving]
  - Enuresis [Recovering/Resolving]
  - Arthralgia [Recovering/Resolving]
  - Cough [Recovering/Resolving]
  - Swelling face [Recovering/Resolving]
  - Dyspnoea [Recovering/Resolving]
  - Peripheral swelling [Recovering/Resolving]
